FAERS Safety Report 14193329 (Version 1)
Quarter: 2017Q4

REPORT INFORMATION
  Report Type: Spontaneous
  Country: US (occurrence: US)
  Receive Date: 20171115
  Receipt Date: 20171115
  Transmission Date: 20180321
  Serious: No
  Sender: FDA-Public Use
  Company Number: US-BAUSCH-BL-2016-032547

PATIENT
  Sex: Male

DRUGS (2)
  1. XENAZINE [Suspect]
     Active Substance: TETRABENAZINE
     Indication: TOURETTE^S DISORDER
     Route: 048
     Dates: start: 20161210
  2. XENAZINE [Suspect]
     Active Substance: TETRABENAZINE
     Indication: CHRONIC TIC DISORDER

REACTIONS (2)
  - Musculoskeletal stiffness [Not Recovered/Not Resolved]
  - Off label use [Unknown]
